FAERS Safety Report 11185965 (Version 1)
Quarter: 2015Q2

REPORT INFORMATION
  Report Type: Spontaneous
  Country: FR (occurrence: FR)
  Receive Date: 20150612
  Receipt Date: 20150612
  Transmission Date: 20150821
  Serious: Yes (Other)
  Sender: FDA-Public Use
  Company Number: FR-EISAI MEDICAL RESEARCH-EC-2015-007613

PATIENT
  Age: 18 Year
  Sex: Male

DRUGS (7)
  1. FYCOMPA [Suspect]
     Active Substance: PERAMPANEL
     Route: 048
     Dates: start: 20150328, end: 20150511
  2. FYCOMPA [Suspect]
     Active Substance: PERAMPANEL
     Route: 048
     Dates: start: 20150512
  3. DEPAKINE [Concomitant]
     Active Substance: VALPROATE SODIUM
     Indication: LENNOX-GASTAUT SYNDROME
     Dosage: UNKNOWN
     Route: 065
  4. RIVOTRIL [Concomitant]
     Active Substance: CLONAZEPAM
     Indication: LENNOX-GASTAUT SYNDROME
     Dosage: UNKNOWN
     Route: 065
  5. MELATONINE [Concomitant]
     Active Substance: MELATONIN
     Indication: PRODUCT USED FOR UNKNOWN INDICATION
     Dosage: UNKNOWN
     Route: 065
  6. LAMICTAL [Concomitant]
     Active Substance: LAMOTRIGINE
     Indication: LENNOX-GASTAUT SYNDROME
     Dosage: UNKNOWN
     Route: 065
  7. FYCOMPA [Suspect]
     Active Substance: PERAMPANEL
     Indication: LENNOX-GASTAUT SYNDROME
     Route: 048
     Dates: start: 20150313, end: 20150327

REACTIONS (5)
  - Off label use [Recovering/Resolving]
  - Aggression [Recovered/Resolved]
  - Electroencephalogram abnormal [Not Recovered/Not Resolved]
  - Confusional state [Recovered/Resolved]
  - Seizure [Recovering/Resolving]

NARRATIVE: CASE EVENT DATE: 2015
